FAERS Safety Report 6771179-1 (Version None)
Quarter: 2010Q2

REPORT INFORMATION
  Report Type: 
  Country: None (occurrence: None)
  Receive Date: 20100616
  Receipt Date: 20100611
  Transmission Date: 20101027
  Serious: Yes (Death, Hospitalization)
  Sender: FDA-Public Use
  Company Number: IT-BAYER-201026653GPV

PATIENT
  Age: 49 Year
  Sex: Male
  Weight: 94 kg

DRUGS (7)
  1. SORAFENIB [Suspect]
     Indication: HEPATIC NEOPLASM MALIGNANT
     Dosage: TOTAL DAILY DOSE: 800 MG
     Route: 048
     Dates: start: 20100414, end: 20100504
  2. ERLOTINIB/PLACEBO [Suspect]
     Indication: HEPATIC NEOPLASM MALIGNANT
     Dosage: TOTAL DAILY DOSE: 150 MG
     Route: 048
     Dates: start: 20100414, end: 20100504
  3. PROPRANOLOL [Concomitant]
     Indication: HYPERTENSION
     Route: 048
  4. OMEPRAZOLE [Concomitant]
     Indication: PROPHYLAXIS
     Route: 048
     Dates: end: 20100331
  5. LISINOPRIL [Concomitant]
     Indication: HYPERTENSION
  6. RANITIDINE HCL [Concomitant]
     Indication: PROPHYLAXIS
     Route: 048
     Dates: start: 20100401
  7. PLASIL [Concomitant]
     Indication: VOMITING
     Dates: start: 20100414

REACTIONS (3)
  - ASCITES [None]
  - DIARRHOEA [None]
  - FATIGUE [None]
